FAERS Safety Report 7784770-0 (Version None)
Quarter: 2011Q3

REPORT INFORMATION
  Report Type: 
  Country: None (occurrence: None)
  Receive Date: 20110928
  Receipt Date: 20110923
  Transmission Date: 20111222
  Serious: Yes (Hospitalization)
  Sender: FDA-Public Use
  Company Number: DE-PFIZER INC-2011201414

PATIENT
  Age: 66 Year
  Sex: Male
  Weight: 108 kg

DRUGS (10)
  1. KALINOR [Concomitant]
     Indication: HYPOKALAEMIA
     Dosage: UNK
     Route: 048
  2. ERYFER [Concomitant]
     Indication: IRON DEFICIENCY
     Dosage: 100 UNK, UNK
     Route: 048
  3. NEBIVOLOL [Concomitant]
     Indication: BLOOD PRESSURE
     Dosage: 7.5 UNK, UNK
     Route: 048
  4. OLMESARTAN MEDOXOMIL [Concomitant]
     Indication: BLOOD PRESSURE
     Dosage: 40 UNK, UNK
     Route: 048
  5. FUROSEMIDE [Concomitant]
     Indication: FLUID RETENTION
     Dosage: 40 UNK, UNK
     Route: 048
  6. SPIRIVA [Concomitant]
     Indication: CHRONIC OBSTRUCTIVE PULMONARY DISEASE
     Dosage: 2.5 UG, TWICE
     Route: 048
  7. AMLODIPINE [Concomitant]
     Indication: BLOOD PRESSURE
     Dosage: 5 UNK, UNK
     Route: 048
     Dates: start: 20110331
  8. PAMORELIN [Concomitant]
     Indication: PROSTATE CANCER
     Dosage: 1.5 UNK, UNK
     Route: 058
     Dates: start: 20100505
  9. PERENTEROL FORTE [Concomitant]
  10. SUNITINIB MALATE [Suspect]
     Indication: RENAL CANCER
     Dosage: 50 MG PER DAY, SUBSEQUENT 2-WEEK-PAUSE
     Route: 048
     Dates: start: 20110801, end: 20110826

REACTIONS (6)
  - ANAEMIA [None]
  - OEDEMA PERIPHERAL [None]
  - LEUKOPENIA [None]
  - ATRIAL FIBRILLATION [None]
  - CHOLESTASIS [None]
  - THROMBOCYTOPENIA [None]
